FAERS Safety Report 4546402-4 (Version None)
Quarter: 2005Q1

REPORT INFORMATION
  Report Type: 
  Country: None (occurrence: None)
  Receive Date: 20050103
  Receipt Date: 20041222
  Transmission Date: 20050727
  Serious: Yes (Hospitalization, Other)
  Sender: FDA-Public Use
  Company Number: 2004100852

PATIENT
  Age: 68 Year
  Sex: Male

DRUGS (4)
  1. AMLODIPINE [Suspect]
     Indication: ANGINA PECTORIS
     Dosage: 5 MG (5 MG, 1 IN 1 D), ORAL
     Route: 048
  2. SIMVASTATIN [Suspect]
     Indication: ANGINA PECTORIS
     Dosage: 20 MG (20 MG, 1 IN 1 D), ORAL
     Route: 048
  3. ASPIRIN [Concomitant]
  4. HEPARIN [Concomitant]

REACTIONS (8)
  - CATHETER SEPSIS [None]
  - DRUG HYPERSENSITIVITY [None]
  - ELECTROCARDIOGRAM ST SEGMENT DEPRESSION [None]
  - JOINT SWELLING [None]
  - MOUTH HAEMORRHAGE [None]
  - PROCEDURAL COMPLICATION [None]
  - STAPHYLOCOCCAL SEPSIS [None]
  - THROMBOTIC THROMBOCYTOPENIC PURPURA [None]
